FAERS Safety Report 21667701 (Version 1)
Quarter: 2022Q4

REPORT INFORMATION
  Report Type: Spontaneous
  Country: PL (occurrence: PL)
  Receive Date: 20221201
  Receipt Date: 20221201
  Transmission Date: 20230112
  Serious: Yes (Hospitalization)
  Sender: FDA-Public Use
  Company Number: PL-002147023-NVSC2022PL265056

PATIENT
  Age: 71 Year
  Sex: Female
  Weight: 80 kg

DRUGS (4)
  1. ERELZI [Suspect]
     Active Substance: ETANERCEPT-SZZS
     Indication: Rheumatoid arthritis
     Dosage: 50 MG, QW
     Route: 058
     Dates: start: 20221017, end: 20221122
  2. CALPEROS [Concomitant]
     Indication: Vitamin D deficiency
     Dosage: 1000 MG (STRENGTH: 1000)
     Route: 048
  3. IBUVIT D [Concomitant]
     Indication: Vitamin D deficiency
     Dosage: 4000 IU (STRENGTH: 4000 IU)
     Route: 048
  4. TORSEMIDE [Concomitant]
     Active Substance: TORSEMIDE
     Indication: Cardiac failure
     Dosage: 5 MG
     Route: 048

REACTIONS (6)
  - Cardiac failure chronic [Unknown]
  - Chronic respiratory failure [Unknown]
  - Condition aggravated [Unknown]
  - Peripheral swelling [Unknown]
  - Exercise tolerance decreased [Unknown]
  - Oxygen saturation decreased [Unknown]

NARRATIVE: CASE EVENT DATE: 20221122
